FAERS Safety Report 9293794 (Version 1)
Quarter: 2013Q2

REPORT INFORMATION
  Report Type: Spontaneous
  Country: US (occurrence: US)
  Receive Date: 20130516
  Receipt Date: 20130516
  Transmission Date: 20140414
  Serious: No
  Sender: FDA-Public Use
  Company Number: US-009507513-1305USA001078

PATIENT
  Sex: Female

DRUGS (4)
  1. CORICIDIN HBP CHEST CONGESTION AND COUGH [Suspect]
     Indication: RESPIRATORY TRACT CONGESTION
     Dosage: 1 DF, BID
     Route: 048
     Dates: start: 20130415, end: 20130415
  2. PANTOPRAZOLE [Concomitant]
     Indication: PRODUCT USED FOR UNKNOWN INDICATION
     Dosage: 40 MG, QAM
  3. SIMVASTATIN [Concomitant]
     Indication: PRODUCT USED FOR UNKNOWN INDICATION
     Dosage: UNK, UNKNOWN
  4. METHIMAZOLE [Concomitant]
     Indication: PRODUCT USED FOR UNKNOWN INDICATION
     Dosage: 5 MG, QD

REACTIONS (1)
  - Diarrhoea [Unknown]
